FAERS Safety Report 5982944-2 (Version None)
Quarter: 2008Q4

REPORT INFORMATION
  Report Type: 
  Country: None (occurrence: None)
  Receive Date: 20081208
  Receipt Date: 20071220
  Transmission Date: 20090506
  Serious: Yes (Other)
  Sender: FDA-Public Use
  Company Number: US-AMGEN-STX255809

PATIENT
  Sex: Female
  Weight: 79.5 kg

DRUGS (8)
  1. ENBREL [Suspect]
     Indication: PSORIASIS
     Route: 058
     Dates: start: 20040801, end: 20050701
  2. ALEFACEPT [Concomitant]
     Route: 065
  3. CORTISONE ACETATE TAB [Concomitant]
     Route: 061
  4. ZOCOR [Concomitant]
     Route: 065
  5. ZINC [Concomitant]
     Route: 065
  6. BENICAR [Concomitant]
     Route: 065
  7. COUMADIN [Concomitant]
     Route: 065
  8. PSORALEN [Concomitant]
     Dates: start: 20020401, end: 20020601

REACTIONS (1)
  - MULTIPLE MYELOMA [None]
